FAERS Safety Report 14665646 (Version 3)
Quarter: 2018Q2

REPORT INFORMATION
  Report Type: Report from Study
  Country: BR (occurrence: BR)
  Receive Date: 20180321
  Receipt Date: 20180413
  Transmission Date: 20180711
  Serious: Yes (Other)
  Sender: FDA-Public Use
  Company Number: BR-JNJFOC-20180321939

PATIENT
  Sex: Male

DRUGS (3)
  1. INFLIXIMAB, RECOMBINANT [Suspect]
     Active Substance: INFLIXIMAB
     Indication: CROHN^S DISEASE
     Route: 042
     Dates: start: 2015
  2. AZATHIOPRINE. [Concomitant]
     Active Substance: AZATHIOPRINE
     Route: 065
  3. INFLIXIMAB, RECOMBINANT [Suspect]
     Active Substance: INFLIXIMAB
     Indication: CROHN^S DISEASE
     Route: 042
     Dates: start: 2016, end: 20170202

REACTIONS (9)
  - Post procedural complication [Unknown]
  - Crohn^s disease [Recovered/Resolved]
  - Drug ineffective [Unknown]
  - Intestinal perforation [Recovering/Resolving]
  - Suture related complication [Unknown]
  - Multiple organ dysfunction syndrome [Unknown]
  - Weight decreased [Unknown]
  - Adverse event [Unknown]
  - Colorectal cancer [Unknown]

NARRATIVE: CASE EVENT DATE: 2017
